FAERS Safety Report 8799559 (Version 3)
Quarter: 2012Q4

REPORT INFORMATION
  Report Type: 
  Country: US (occurrence: US)
  Receive Date: 20120919
  Receipt Date: 20121121
  Transmission Date: 20130627
  Serious: Yes (Hospitalization)
  Sender: FDA-Public Use
  Company Number: US-PFIZER INC-2012227571

PATIENT
  Age: 56 Year
  Sex: Female

DRUGS (7)
  1. INLYTA [Suspect]
     Indication: RENAL CELL CARCINOMA
     Dosage: 5 mg, 2x/day
     Dates: start: 201206, end: 20120904
  2. CLONAZEPAM [Suspect]
     Indication: SEIZURE
     Dosage: 1 mg, 1x/day  (at bedtime)
  3. PRIMIDONE [Suspect]
     Indication: SEIZURE
     Dosage: 250 mg, 1x/day  (at bedtime)
  4. LACOSAMIDE [Suspect]
     Indication: SEIZURE
     Dosage: 50 mg, 2x/day
  5. KEPPRA [Suspect]
     Indication: SEIZURE
     Dosage: 1500 mg, 2x/day
  6. LAMICTAL [Suspect]
     Indication: SEIZURE
     Dosage: 300 mg, 2x/day
  7. HYDROCODONE W/ACETAMINOPHEN [Concomitant]
     Dosage: 10/325 mg, as needed

REACTIONS (1)
  - Convulsion [Recovered/Resolved]
